FAERS Safety Report 9804418 (Version 1)
Quarter: 2014Q1

REPORT INFORMATION
  Report Type: Spontaneous
  Country: US (occurrence: US)
  Receive Date: 20140108
  Receipt Date: 20140108
  Transmission Date: 20141002
  Serious: Yes (Hospitalization)
  Sender: FDA-Public Use
  Company Number: US-PURDUE-USA-2014-0109982

PATIENT
  Sex: Male

DRUGS (1)
  1. MORPHINE SULFATE EXTENDED-RELEASE TABLETS (RHODES 74-769, 74-862) [Suspect]
     Indication: PAIN

REACTIONS (8)
  - Localised infection [Unknown]
  - Arthritis [Unknown]
  - Osteomyelitis [Unknown]
  - Gout [Unknown]
  - Hospitalisation [Unknown]
  - Laceration [Unknown]
  - Hypoaesthesia [Unknown]
  - Local swelling [Unknown]
